FAERS Safety Report 13972242 (Version 1)
Quarter: 2017Q3

REPORT INFORMATION
  Report Type: Spontaneous
  Country: US (occurrence: US)
  Receive Date: 20170914
  Receipt Date: 20170914
  Transmission Date: 20171128
  Serious: Yes (Other)
  Sender: FDA-Public Use
  Company Number: PHEH2017US028255

PATIENT
  Age: 66 Year
  Sex: Female
  Weight: 90.2 kg

DRUGS (3)
  1. IBRANCE [Suspect]
     Active Substance: PALBOCICLIB
     Indication: BREAST CANCER METASTATIC
     Dosage: 1 DF, QD (1 DAILYX21 DAYS-7 DAYS OFF)
     Route: 048
     Dates: start: 20150629
  2. CYMBALTA [Suspect]
     Active Substance: DULOXETINE HYDROCHLORIDE
     Indication: PRODUCT USED FOR UNKNOWN INDICATION
     Dosage: 1 DF, QD
     Route: 048
     Dates: start: 20170727
  3. LETROZOLE. [Suspect]
     Active Substance: LETROZOLE
     Indication: BREAST CANCER METASTATIC
     Dosage: 1 DF, QD
     Route: 048
     Dates: start: 20150516

REACTIONS (21)
  - Dysuria [Unknown]
  - Discomfort [Unknown]
  - Intervertebral disc degeneration [Unknown]
  - Thyroid mass [Unknown]
  - Oedema [Unknown]
  - Pain [Recovering/Resolving]
  - Constipation [Unknown]
  - Arthralgia [Unknown]
  - Breast cancer metastatic [Recovering/Resolving]
  - Neutropenia [Unknown]
  - Osteoarthritis [Unknown]
  - Breast pain [Unknown]
  - Anxiety [Unknown]
  - Malignant neoplasm progression [Recovering/Resolving]
  - Tumour marker decreased [Unknown]
  - Metastases to bone [Recovering/Resolving]
  - Musculoskeletal pain [Unknown]
  - Toothache [Unknown]
  - Pulmonary mass [Unknown]
  - Urinary tract infection [Recovering/Resolving]
  - Macrocytosis [Unknown]

NARRATIVE: CASE EVENT DATE: 20150526
